FAERS Safety Report 11124782 (Version 3)
Quarter: 2015Q4

REPORT INFORMATION
  Report Type: Report from Study
  Country: US (occurrence: US)
  Receive Date: 20150520
  Receipt Date: 20151016
  Transmission Date: 20160304
  Serious: Yes (Hospitalization, Other)
  Sender: FDA-Public Use
  Company Number: US-GLAXOSMITHKLINE-US2015010620

PATIENT
  Age: 70 Year
  Sex: Male
  Weight: 63.1 kg

DRUGS (1)
  1. FLUTICASONE FUR+UMECLIDINIUM+VILANTEROL [Suspect]
     Active Substance: FLUTICASONE FUROATE\UMECLIDINIUM BROMIDE\VILANTEROL TRIFENATATE
     Indication: CHRONIC OBSTRUCTIVE PULMONARY DISEASE
     Dosage: 1 PUFF(S), QD
     Route: 055
     Dates: start: 20141230

REACTIONS (1)
  - Pneumothorax [Recovered/Resolved]

NARRATIVE: CASE EVENT DATE: 20150124
